FAERS Safety Report 24232231 (Version 1)
Quarter: 2024Q3

REPORT INFORMATION
  Report Type: Spontaneous
  Country: SK (occurrence: SK)
  Receive Date: 20240821
  Receipt Date: 20240821
  Transmission Date: 20241016
  Serious: Yes (Other)
  Sender: PFIZER
  Company Number: SK-PFIZER INC-PV202400107834

PATIENT
  Age: 33 Year
  Sex: Female

DRUGS (1)
  1. CIBINQO [Suspect]
     Active Substance: ABROCITINIB
     Dosage: 200 MG (SHORT-TERM TREATMENT)
     Route: 048
     Dates: start: 202406

REACTIONS (2)
  - Herpes ophthalmic [Unknown]
  - Herpes virus infection [Unknown]

NARRATIVE: CASE EVENT DATE: 20240101
